FAERS Safety Report 4822437-9 (Version None)
Quarter: 2005Q4

REPORT INFORMATION
  Report Type: 
  Country: None (occurrence: None)
  Receive Date: 20051104
  Receipt Date: 20051104
  Transmission Date: 20060501
  Serious: No
  Sender: FDA-Public Use
  Company Number: None

PATIENT

DRUGS (4)
  1. PROPRANOLOL [Suspect]
     Dosage: TABLET
  2. INDERAL LA [Suspect]
     Dosage: CAPSULE, EXTENDED RELEASE
  3. PROPRANOLOL [Suspect]
     Dosage: TABLET
  4. INDERAL LA [Suspect]
     Dosage: CAPSULE, EXTENDED RELEASE

REACTIONS (2)
  - INTERCEPTED MEDICATION ERROR [None]
  - MEDICATION ERROR [None]
